FAERS Safety Report 8301273-5 (Version None)
Quarter: 2012Q2

REPORT INFORMATION
  Report Type: 
  Country: None (occurrence: None)
  Receive Date: 20120420
  Receipt Date: 20120417
  Transmission Date: 20120825
  Serious: Yes (Hospitalization)
  Sender: FDA-Public Use
  Company Number: FR-SANOFI-AVENTIS-2012SA026510

PATIENT
  Age: 74 Year
  Sex: Male

DRUGS (8)
  1. PHENYTOIN SODIUM [Interacting]
     Indication: EPILEPSY
     Dosage: DOSE: 150 MG MORNING AND 100 MG EVENING
     Route: 048
  2. TEGRETOL [Concomitant]
     Indication: EPILEPSY
     Dosage: STRENGTH: 400 MG
     Route: 048
  3. LASIX [Suspect]
     Route: 048
     Dates: start: 20120302, end: 20120315
  4. URBANYL [Concomitant]
     Route: 048
  5. BISOPROLOL FUMARATE [Concomitant]
     Route: 048
  6. PREVISCAN [Concomitant]
     Dates: start: 20120306
  7. SODIUM CHLORIDE [Concomitant]
  8. CORDARONE [Interacting]
     Route: 048
     Dates: start: 20120306, end: 20120311

REACTIONS (3)
  - CEREBELLAR SYNDROME [None]
  - DRUG INTERACTION [None]
  - DYSARTHRIA [None]
